FAERS Safety Report 10919051 (Version 1)
Quarter: 2015Q1

REPORT INFORMATION
  Report Type: Spontaneous
  Country: US (occurrence: None)
  Receive Date: 20150312
  Receipt Date: 20150312
  Transmission Date: 20150721
  Serious: Yes (Death, Other)
  Sender: FDA-Public Use
  Company Number: FK201501145

PATIENT
  Age: 64 Year
  Sex: Male

DRUGS (3)
  1. COLISTIMETHATE [Suspect]
     Active Substance: COLISTIMETHATE SODIUM
     Indication: BACTERAEMIA
  2. DORIPENEM [Suspect]
     Active Substance: DORIPENEM
     Indication: BACTERAEMIA
  3. DOXYCYCLINE FOR INJECTION [Concomitant]
     Active Substance: DOXYCYCLINE

REACTIONS (4)
  - Renal failure [None]
  - Staphylococcal sepsis [None]
  - Transplant failure [None]
  - Haemodialysis [None]
